FAERS Safety Report 6343062-7 (Version None)
Quarter: 2009Q3

REPORT INFORMATION
  Report Type: 
  Country: None (occurrence: None)
  Receive Date: 20090908
  Receipt Date: 20090903
  Transmission Date: 20100115
  Serious: Yes (Hospitalization)
  Sender: FDA-Public Use
  Company Number: GB-WYE-G04146509

PATIENT
  Sex: Male
  Weight: 96.5 kg

DRUGS (10)
  1. SIROLIMUS [Suspect]
     Route: 048
     Dates: start: 20090218
  2. SIROLIMUS [Suspect]
     Route: 048
     Dates: end: 20090812
  3. BECONASE [Concomitant]
     Dosage: UNKNOWN
  4. PREDNISOLONE [Concomitant]
     Dosage: UNKNOWN
  5. MYCOPHENOLATE MOFETIL [Concomitant]
     Dosage: UNKNOWN
  6. WARFARIN SODIUM [Concomitant]
     Dosage: UNKNOWN
  7. DOXAZOSIN [Concomitant]
     Dosage: UNKNOWN
  8. PROBENECID [Concomitant]
     Dosage: UNKNOWN
  9. DILTIAZEM [Concomitant]
     Dosage: UNKNOWN
  10. SOTALOL HYDROCHLORIDE [Concomitant]
     Dosage: UNKNOWN

REACTIONS (5)
  - ATRIOVENTRICULAR BLOCK [None]
  - CELLULITIS [None]
  - INTERSTITIAL LUNG DISEASE [None]
  - NECROSIS [None]
  - SKIN ULCER [None]
